FAERS Safety Report 15360216 (Version 1)
Quarter: 2018Q3

REPORT INFORMATION
  Report Type: Spontaneous
  Country: US (occurrence: US)
  Receive Date: 20180831
  Receipt Date: 20180831
  Transmission Date: 20181010
  Serious: Yes (Other)
  Sender: FDA-Public Use
  Company Number: None

PATIENT
  Age: 11 Year
  Sex: Male
  Weight: 78.75 kg

DRUGS (1)
  1. POLYSORBATE [Suspect]
     Active Substance: POLYSORBATE
     Indication: EATING DISORDER
     Dates: start: 20170626

REACTIONS (2)
  - Urticaria [None]
  - Blood pressure fluctuation [None]

NARRATIVE: CASE EVENT DATE: 20170627
